FAERS Safety Report 8507931 (Version 3)
Quarter: 2013Q2

REPORT INFORMATION
  Report Type: Spontaneous
  Country: US (occurrence: US)
  Receive Date: 20120412
  Receipt Date: 20130509
  Transmission Date: 20140414
  Serious: No
  Sender: FDA-Public Use
  Company Number: US-ASTRAZENECA-2012SE14044

PATIENT
  Age: 28 Year
  Sex: Female

DRUGS (2)
  1. NEXIUM [Suspect]
     Route: 048
  2. PRILOSEC [Suspect]
     Route: 048

REACTIONS (8)
  - Back pain [Unknown]
  - Pain [Unknown]
  - Gastrooesophageal reflux disease [Unknown]
  - Abdominal pain upper [Unknown]
  - Malaise [Unknown]
  - Drug ineffective [Unknown]
  - Intentional drug misuse [Unknown]
  - Drug dose omission [Unknown]
